FAERS Safety Report 15574159 (Version 3)
Quarter: 2018Q4

REPORT INFORMATION
  Report Type: Spontaneous
  Country: US (occurrence: US)
  Receive Date: 20181101
  Receipt Date: 20181123
  Transmission Date: 20190205
  Serious: No
  Sender: FDA-Public Use
  Company Number: US-009507513-1810USA002463

PATIENT
  Age: 73 Year
  Sex: Female

DRUGS (5)
  1. ASMANEX [Suspect]
     Active Substance: MOMETASONE FUROATE
     Dosage: 220 MCG (1 PUFF), ONCE DAILY
     Route: 055
  2. ASMANEX [Suspect]
     Active Substance: MOMETASONE FUROATE
     Dosage: 220 MCG (1 PUFF), ONCE DAILY
     Route: 055
     Dates: start: 20180916
  3. SINGULAIR [Concomitant]
     Active Substance: MONTELUKAST SODIUM
     Dosage: UNK
  4. PROAIR (PROCATEROL HYDROCHLORIDE) [Concomitant]
     Active Substance: PROCATEROL HYDROCHLORIDE
     Indication: ASTHMA
     Dosage: UNK
  5. ASMANEX [Suspect]
     Active Substance: MOMETASONE FUROATE
     Indication: ASTHMA
     Dosage: 220 MCG (1 PUFF), ONCE DAILY
     Route: 055
     Dates: start: 201402

REACTIONS (5)
  - Poor quality device used [Unknown]
  - Cough [Not Recovered/Not Resolved]
  - Product dose omission [Unknown]
  - Product quality issue [Not Recovered/Not Resolved]
  - Dyspnoea [Not Recovered/Not Resolved]

NARRATIVE: CASE EVENT DATE: 20180916
